FAERS Safety Report 18424431 (Version 2)
Quarter: 2020Q4

REPORT INFORMATION
  Report Type: Spontaneous
  Country: US (occurrence: US)
  Receive Date: 20201026
  Receipt Date: 20201207
  Transmission Date: 20210114
  Serious: No
  Sender: FDA-Public Use
  Company Number: US-ASTRAZENECA-2020SF37062

PATIENT
  Sex: Male
  Weight: 102.5 kg

DRUGS (2)
  1. BYDUREON BCISE [Suspect]
     Active Substance: EXENATIDE
     Indication: BLOOD GLUCOSE INCREASED
     Route: 058
  2. BYDUREON BCISE [Suspect]
     Active Substance: EXENATIDE
     Indication: WEIGHT DECREASED
     Route: 058

REACTIONS (5)
  - Wrong technique in device usage process [Unknown]
  - Injection site pain [Not Recovered/Not Resolved]
  - Device malfunction [Unknown]
  - Injection site nodule [Recovered/Resolved]
  - Device leakage [Unknown]
